FAERS Safety Report 4705744-X (Version None)
Quarter: 2005Q3

REPORT INFORMATION
  Report Type: 
  Country: None (occurrence: None)
  Receive Date: 20050701
  Receipt Date: 20050525
  Transmission Date: 20060218
  Serious: Yes (Hospitalization)
  Sender: FDA-Public Use
  Company Number: JP-MERCK-0505USA03436

PATIENT
  Age: 57 Year
  Sex: Male

DRUGS (6)
  1. COZAAR [Suspect]
     Indication: ACUTE MYOCARDIAL INFARCTION
     Route: 048
     Dates: start: 20001001, end: 20010405
  2. FRANDOL [Concomitant]
     Indication: MYOCARDIAL INFARCTION
     Route: 065
     Dates: start: 20001001, end: 20010201
  3. ALFACALCIDOL [Concomitant]
     Indication: RENAL FAILURE
     Route: 048
     Dates: start: 20001001, end: 20010405
  4. BLOPRESS [Concomitant]
     Indication: MYOCARDIAL INFARCTION
     Route: 065
     Dates: start: 20000801, end: 20001001
  5. TICLOPIDINE HYDROCHLORIDE [Suspect]
     Indication: ACUTE MYOCARDIAL INFARCTION
     Route: 048
     Dates: start: 20000801, end: 20010405
  6. ITOROL [Concomitant]
     Indication: MYOCARDIAL INFARCTION
     Route: 048
     Dates: start: 20000801, end: 20001001

REACTIONS (1)
  - LICHEN PLANUS [None]
